FAERS Safety Report 10027882 (Version 1)
Quarter: 2014Q1

REPORT INFORMATION
  Report Type: Spontaneous
  Country: US (occurrence: US)
  Receive Date: 20140321
  Receipt Date: 20140321
  Transmission Date: 20141002
  Serious: No
  Sender: FDA-Public Use
  Company Number: US-B.I. PHARMACEUTICALS,INC./RIDGEFIELD-2014-BI-11504BP

PATIENT
  Age: 76 Year
  Sex: Female

DRUGS (8)
  1. TRADJENTA [Suspect]
     Indication: DIABETES MELLITUS
     Dosage: 5 MG
     Route: 048
     Dates: start: 20140312
  2. METFORMIN [Concomitant]
     Indication: DIABETES MELLITUS
     Route: 048
  3. PRILOSEC [Concomitant]
     Route: 048
  4. PRAVASTATIN [Concomitant]
     Route: 048
  5. VICTOZA [Concomitant]
     Indication: DIABETES MELLITUS
     Route: 058
  6. LISINOPRIL [Concomitant]
     Route: 048
  7. METOPROLOL [Concomitant]
     Route: 048
  8. CITALOPRAM [Concomitant]
     Indication: ILL-DEFINED DISORDER
     Route: 048

REACTIONS (3)
  - Muscle spasms [Not Recovered/Not Resolved]
  - Gait disturbance [Not Recovered/Not Resolved]
  - Muscle rigidity [Not Recovered/Not Resolved]
